FAERS Safety Report 9759703 (Version 1)
Quarter: 2013Q4

REPORT INFORMATION
  Report Type: Spontaneous
  Country: DE (occurrence: None)
  Receive Date: 20131212
  Receipt Date: 20131212
  Transmission Date: 20140711
  Serious: Yes (Other)
  Sender: FDA-Public Use
  Company Number: 2013P1021735

PATIENT
  Age: 65 Year
  Sex: Male

DRUGS (1)
  1. ISOTRETINOIN [Suspect]
     Indication: NEUROBLASTOMA

REACTIONS (2)
  - Hypercalcaemia [None]
  - Electrocardiogram QT prolonged [None]
